FAERS Safety Report 8011203-1 (Version None)
Quarter: 2011Q4

REPORT INFORMATION
  Report Type: 
  Country: None (occurrence: None)
  Receive Date: 20111228
  Receipt Date: 20111221
  Transmission Date: 20120403
  Serious: Yes (Other)
  Sender: FDA-Public Use
  Company Number: US-JNJFOC-20111210808

PATIENT
  Sex: Female
  Weight: 88.45 kg

DRUGS (3)
  1. LEVOTHYROXINE SODIUM [Concomitant]
     Indication: HYPOTHYROIDISM
     Route: 048
     Dates: start: 20040101
  2. LEVAQUIN [Suspect]
     Indication: SINUSITIS
     Route: 048
     Dates: start: 20111119, end: 20111122
  3. LOVASTATIN [Concomitant]
     Indication: BLOOD CHOLESTEROL
     Route: 048

REACTIONS (8)
  - WEIGHT BEARING DIFFICULTY [None]
  - TENDON DISORDER [None]
  - BACK PAIN [None]
  - GAIT DISTURBANCE [None]
  - ARTHRALGIA [None]
  - MUSCULOSKELETAL PAIN [None]
  - GROIN PAIN [None]
  - ARTHRITIS [None]
